FAERS Safety Report 17931369 (Version 1)
Quarter: 2020Q2

REPORT INFORMATION
  Report Type: Spontaneous
  Country: CN (occurrence: CN)
  Receive Date: 20200623
  Receipt Date: 20200623
  Transmission Date: 20200714
  Serious: Yes (Other)
  Sender: FDA-Public Use
  Company Number: CN-ASTRAZENECA-2020SE79143

PATIENT
  Sex: Female

DRUGS (1)
  1. TAGRISSO [Suspect]
     Active Substance: OSIMERTINIB
     Indication: NEOPLASM MALIGNANT
     Dosage: UNKNOWN
     Route: 048

REACTIONS (12)
  - Metastases to lung [Unknown]
  - Gait inability [Unknown]
  - Chest discomfort [Unknown]
  - Pericardial effusion [Unknown]
  - Asthenia [Unknown]
  - Venous thrombosis limb [Unknown]
  - Musculoskeletal stiffness [Unknown]
  - Drug ineffective [Unknown]
  - Swelling face [Unknown]
  - Peripheral swelling [Unknown]
  - Dyspnoea [Unknown]
  - Neoplasm [Unknown]
